FAERS Safety Report 8304211-4 (Version None)
Quarter: 2012Q2

REPORT INFORMATION
  Report Type: 
  Country: None (occurrence: None)
  Receive Date: 20120423
  Receipt Date: 20120416
  Transmission Date: 20120825
  Serious: Yes (Other)
  Sender: FDA-Public Use
  Company Number: US-BAYER-2012-036885

PATIENT
  Sex: Female

DRUGS (2)
  1. ALEVE (CAPLET) [Suspect]
     Indication: NASOPHARYNGITIS
     Dosage: UNK
     Route: 048
  2. ALEVE (CAPLET) [Suspect]
     Indication: PAIN

REACTIONS (2)
  - EYELID OEDEMA [None]
  - RASH [None]
